FAERS Safety Report 11931553 (Version 2)
Quarter: 2016Q4

REPORT INFORMATION
  Report Type: Spontaneous
  Country: DK (occurrence: DK)
  Receive Date: 20160120
  Receipt Date: 20161207
  Transmission Date: 20170206
  Serious: Yes (Hospitalization)
  Sender: FDA-Public Use
  Company Number: PHHY2016DK003713

PATIENT
  Age: 85 Year
  Sex: Female

DRUGS (1)
  1. CORDAN [Suspect]
     Active Substance: AMIODARONE
     Indication: ATRIAL FIBRILLATION
     Dosage: 200 MG, QD STRENGTH: 200 MG.
     Route: 048
     Dates: start: 2011

REACTIONS (3)
  - Myxoedema [Recovered/Resolved]
  - Transaminases increased [Recovered/Resolved]
  - General physical health deterioration [Unknown]

NARRATIVE: CASE EVENT DATE: 201405
